FAERS Safety Report 8023968-3 (Version None)
Quarter: 2012Q1

REPORT INFORMATION
  Report Type: 
  Country: None (occurrence: None)
  Receive Date: 20120105
  Receipt Date: 20120102
  Transmission Date: 20120608
  Serious: Yes (Death, Hospitalization, Other)
  Sender: FDA-Public Use
  Company Number: DE-PFIZER INC-2011250223

PATIENT
  Age: 52 Year
  Sex: Female
  Weight: 60 kg

DRUGS (3)
  1. SUTENT [Suspect]
     Dosage: 37.5 MG, 1X/DAY
     Route: 048
     Dates: start: 20110718, end: 20111012
  2. SUTENT [Suspect]
     Dosage: 25 MG, 1X/DAY
     Dates: start: 20110620, end: 20110718
  3. SUTENT [Suspect]
     Indication: GASTROINTESTINAL STROMAL TUMOUR
     Dosage: 12 MG, 1X/DAY
     Route: 048
     Dates: start: 20110609, end: 20110620

REACTIONS (4)
  - PULMONARY EMBOLISM [None]
  - VENA CAVA THROMBOSIS [None]
  - JUGULAR VEIN THROMBOSIS [None]
  - THYROID CANCER METASTATIC [None]
